FAERS Safety Report 4846417-2 (Version None)
Quarter: 2005Q4

REPORT INFORMATION
  Report Type: 
  Country: None (occurrence: None)
  Receive Date: 20051206
  Receipt Date: 20051121
  Transmission Date: 20060501
  Serious: Yes (Other)
  Sender: FDA-Public Use
  Company Number: CA-AMGEN-US158602

PATIENT
  Sex: Female

DRUGS (6)
  1. ENBREL [Suspect]
     Indication: RHEUMATOID ARTHRITIS
     Route: 058
     Dates: start: 20010101, end: 20050501
  2. EFFEXOR [Concomitant]
     Dates: start: 20020101
  3. OXYCONTIN [Concomitant]
  4. METHOTREXATE [Concomitant]
     Dates: start: 20041201, end: 20050501
  5. HYDROCHLOROTHIAZIDE [Concomitant]
     Dates: start: 20040101
  6. LEFLUNOMIDE [Concomitant]
     Dates: start: 20050101, end: 20050501

REACTIONS (1)
  - CONVULSION [None]
